FAERS Safety Report 8095974-4 (Version None)
Quarter: 2012Q1

REPORT INFORMATION
  Report Type: 
  Country: None (occurrence: None)
  Receive Date: 20120129
  Receipt Date: 20111227
  Transmission Date: 20120608
  Serious: No
  Sender: FDA-Public Use
  Company Number: US-ABBOTT-11P-163-0886914-00

PATIENT
  Age: 92 Year
  Sex: Female

DRUGS (2)
  1. PEPCID [Concomitant]
     Indication: ABDOMINAL DISCOMFORT
     Route: 048
  2. HUMIRA [Suspect]
     Indication: COLITIS ULCERATIVE
     Dosage: INITIAL DOSE
     Dates: start: 20111220

REACTIONS (1)
  - ABDOMINAL PAIN UPPER [None]
